FAERS Safety Report 14002780 (Version 1)
Quarter: 2017Q3

REPORT INFORMATION
  Report Type: Spontaneous
  Country: US (occurrence: US)
  Receive Date: 20170922
  Receipt Date: 20170922
  Transmission Date: 20171128
  Serious: No
  Sender: FDA-Public Use
  Company Number: US-AMGEN-USASP2017070894

PATIENT
  Age: 51 Year
  Sex: Male

DRUGS (1)
  1. NEUPOGEN [Suspect]
     Active Substance: FILGRASTIM
     Indication: WHITE BLOOD CELL COUNT DECREASED
     Dosage: 408 MUG, UNK
     Route: 065

REACTIONS (5)
  - Off label use [Unknown]
  - Wrong technique in product usage process [Unknown]
  - Nausea [Unknown]
  - Drug dose omission [Unknown]
  - Injection site pain [Unknown]

NARRATIVE: CASE EVENT DATE: 201705
